FAERS Safety Report 25596806 (Version 1)
Quarter: 2025Q3

REPORT INFORMATION
  Report Type: Spontaneous
  Country: US (occurrence: None)
  Receive Date: 20250722
  Receipt Date: 20250722
  Transmission Date: 20251020
  Serious: Yes (Hospitalization)
  Sender: FDA-CTU
  Company Number: None

PATIENT
  Age: 55 Year
  Sex: Female

DRUGS (1)
  1. TRIAMCINOLONE ACETONIDE [Suspect]
     Active Substance: TRIAMCINOLONE ACETONIDE
     Route: 030
     Dates: start: 20250608

REACTIONS (5)
  - Injection site oedema [None]
  - Myositis [None]
  - Lymphadenopathy [None]
  - Injection site cellulitis [None]
  - Injection site abscess [None]

NARRATIVE: CASE EVENT DATE: 20250608
